FAERS Safety Report 4590576-6 (Version None)
Quarter: 2005Q1

REPORT INFORMATION
  Report Type: 
  Country: None (occurrence: None)
  Receive Date: 20050224
  Receipt Date: 20050203
  Transmission Date: 20050727
  Serious: Yes (Life-Threatening)
  Sender: FDA-Public Use
  Company Number: JP-GLAXOSMITHKLINE-B0370227A

PATIENT
  Age: 26 Year
  Sex: Female
  Weight: 53 kg

DRUGS (3)
  1. FLOLAN [Suspect]
     Indication: PULMONARY HYPERTENSION
     Route: 042
     Dates: start: 20041117
  2. LASIX [Concomitant]
     Route: 048
     Dates: start: 20041222
  3. SELBEX [Concomitant]
     Dosage: 150MG PER DAY
     Route: 048

REACTIONS (6)
  - ATELECTASIS [None]
  - DYSPNOEA [None]
  - LUNG INFILTRATION [None]
  - POST PROCEDURAL HAEMORRHAGE [None]
  - PULMONARY ALVEOLAR HAEMORRHAGE [None]
  - PULMONARY EMBOLISM [None]
